FAERS Safety Report 22739709 (Version 7)
Quarter: 2023Q4

REPORT INFORMATION
  Report Type: Report from Study
  Country: MX (occurrence: MX)
  Receive Date: 20230722
  Receipt Date: 20231220
  Transmission Date: 20240110
  Serious: Yes (Hospitalization, Other)
  Sender: FDA-Public Use
  Company Number: MX-002147023-NVSC2023MX144147

PATIENT
  Age: 49 Year
  Sex: Male
  Weight: 124 kg

DRUGS (1)
  1. TASIGNA [Suspect]
     Active Substance: NILOTINIB
     Indication: Chronic myeloid leukaemia
     Dosage: UNK (26 NOV YEAR UNKNOWN)
     Route: 048
     Dates: start: 20221116

REACTIONS (46)
  - Accident [Unknown]
  - Eye injury [Unknown]
  - Dizziness [Unknown]
  - Blindness [Not Recovered/Not Resolved]
  - Depressed mood [Unknown]
  - Gait disturbance [Unknown]
  - Oropharyngeal discomfort [Unknown]
  - Hunger [Unknown]
  - Food craving [Unknown]
  - Nervousness [Unknown]
  - Dysuria [Unknown]
  - Vomiting [Unknown]
  - Diarrhoea [Unknown]
  - Chills [Unknown]
  - Weight increased [Unknown]
  - Weight decreased [Unknown]
  - Abdominal discomfort [Unknown]
  - Hernia [Unknown]
  - Jaw disorder [Unknown]
  - Somnolence [Unknown]
  - Apathy [Unknown]
  - Ear pain [Unknown]
  - Pain [Recovering/Resolving]
  - Laboratory test abnormal [Unknown]
  - Eye pain [Unknown]
  - Hypotension [Unknown]
  - PO2 decreased [Unknown]
  - Discouragement [Unknown]
  - Tension [Unknown]
  - Fall [Unknown]
  - Swelling [Unknown]
  - Heart rate irregular [Unknown]
  - Feeling of despair [Unknown]
  - Balance disorder [Unknown]
  - Oxygen saturation abnormal [Unknown]
  - Crying [Unknown]
  - Tremor [Unknown]
  - Cardiac disorder [Unknown]
  - Head titubation [Unknown]
  - Anaemia [Unknown]
  - Headache [Unknown]
  - Insomnia [Unknown]
  - Dyspnoea [Unknown]
  - Asthenia [Unknown]
  - Fatigue [Unknown]
  - Hypertension [Unknown]

NARRATIVE: CASE EVENT DATE: 20230717
